FAERS Safety Report 8503984 (Version 4)
Quarter: 2013Q2

REPORT INFORMATION
  Report Type: Spontaneous
  Country: US (occurrence: US)
  Receive Date: 20120411
  Receipt Date: 20130604
  Transmission Date: 20140414
  Serious: Yes (Other)
  Sender: FDA-Public Use
  Company Number: US-ROCHE-1056737

PATIENT
  Age: 22 Year
  Sex: Male
  Weight: 93.07 kg

DRUGS (2)
  1. ACCUTANE [Suspect]
     Indication: ACNE
     Route: 048
     Dates: start: 19970429, end: 19970922
  2. ACCUTANE [Suspect]
     Route: 065
     Dates: end: 20000807

REACTIONS (14)
  - Colitis ulcerative [Unknown]
  - Irritable bowel syndrome [Unknown]
  - Inflammatory bowel disease [Unknown]
  - Cheilitis [Unknown]
  - Xerosis [Unknown]
  - Osteoarthritis [Unknown]
  - Fatigue [Unknown]
  - Pain [Unknown]
  - Eczema asteatotic [Unknown]
  - Dry eye [Unknown]
  - Nasal dryness [Unknown]
  - Dry skin [Unknown]
  - Skin fragility [Unknown]
  - Epistaxis [Unknown]
